FAERS Safety Report 20176786 (Version 1)
Quarter: 2021Q4

REPORT INFORMATION
  Report Type: Report from Study
  Country: MX (occurrence: MX)
  Receive Date: 20211213
  Receipt Date: 20211213
  Transmission Date: 20220304
  Serious: Yes (Hospitalization, Other)
  Sender: FDA-Public Use
  Company Number: MX-NOVARTISPH-NVSC2021MX283943

PATIENT
  Sex: Female
  Weight: 82 kg

DRUGS (1)
  1. TASIGNA [Suspect]
     Active Substance: NILOTINIB
     Indication: Chronic myeloid leukaemia
     Dosage: UNK (3 YEARS AND 5 MONTHS AGO)
     Route: 048

REACTIONS (14)
  - Abdominal pain upper [Unknown]
  - Hypothyroidism [Unknown]
  - Kidney infection [Unknown]
  - Thyroid neoplasm [Unknown]
  - Diarrhoea [Unknown]
  - Gastritis [Unknown]
  - Fatigue [Unknown]
  - Weight increased [Unknown]
  - Food craving [Unknown]
  - Thirst [Unknown]
  - Dry mouth [Unknown]
  - Eyelid skin dryness [Unknown]
  - Dry eye [Unknown]
  - Flatulence [Unknown]
